FAERS Safety Report 25012168 (Version 1)
Quarter: 2025Q1

REPORT INFORMATION
  Report Type: Spontaneous
  Country: NL (occurrence: NL)
  Receive Date: 20250226
  Receipt Date: 20250226
  Transmission Date: 20250409
  Serious: Yes (Hospitalization, Other)
  Sender: ROCHE
  Company Number: None

PATIENT
  Age: 63 Year
  Sex: Male

DRUGS (9)
  1. RITUXIMAB [Suspect]
     Active Substance: RITUXIMAB
     Indication: Chronic lymphocytic leukaemia
     Dosage: WEEKLY
     Route: 065
     Dates: start: 202402
  2. RITUXIMAB [Suspect]
     Active Substance: RITUXIMAB
     Indication: Haemolytic anaemia
     Route: 065
     Dates: start: 2024
  3. VENETOCLAX [Suspect]
     Active Substance: VENETOCLAX
     Indication: Chronic lymphocytic leukaemia
     Route: 048
     Dates: start: 202402, end: 2024
  4. RASBURICASE [Suspect]
     Active Substance: RASBURICASE
     Indication: Blood lactate dehydrogenase increased
     Route: 065
  5. PREDNISONE [Suspect]
     Active Substance: PREDNISONE
     Indication: Haemolytic anaemia
     Route: 065
     Dates: start: 2024
  6. ALLOPURINOL [Suspect]
     Active Substance: ALLOPURINOL
     Indication: Tumour lysis syndrome
     Route: 065
     Dates: start: 202402
  7. METHYLPREDNISOLONE [Suspect]
     Active Substance: METHYLPREDNISOLONE
     Indication: Haemolytic anaemia
     Route: 065
     Dates: start: 2024, end: 2024
  8. IBRUTINIB [Suspect]
     Active Substance: IBRUTINIB
     Indication: Chronic lymphocytic leukaemia
     Route: 048
     Dates: end: 202402
  9. FOLIC ACID [Suspect]
     Active Substance: FOLIC ACID
     Indication: Haemolytic anaemia
     Route: 065

REACTIONS (8)
  - Transient aphasia [Recovered/Resolved]
  - Leukocytosis [Unknown]
  - Nervous system disorder [Recovered/Resolved]
  - Autoimmune haemolytic anaemia [Recovering/Resolving]
  - Chronic lymphocytic leukaemia recurrent [Recovering/Resolving]
  - Facial paralysis [Recovered/Resolved]
  - Thrombocytopenia [Unknown]
  - Somnolence [Recovered/Resolved]

NARRATIVE: CASE EVENT DATE: 20240201
